FAERS Safety Report 7716358-1 (Version None)
Quarter: 2011Q3

REPORT INFORMATION
  Report Type: 
  Country: None (occurrence: None)
  Receive Date: 20110829
  Receipt Date: 20110819
  Transmission Date: 20111222
  Serious: Yes (Other)
  Sender: FDA-Public Use
  Company Number: PHHY2011JP75196

PATIENT
  Age: 3 Year
  Sex: Male

DRUGS (1)
  1. VALPROATE SODIUM [Suspect]
     Indication: EPILEPSY

REACTIONS (10)
  - PYREXIA [None]
  - HYPOURICAEMIA [None]
  - BETA 2 MICROGLOBULIN URINE INCREASED [None]
  - BRONCHITIS [None]
  - RENAL TUBULAR DISORDER [None]
  - BACTERIAL INFECTION [None]
  - AMINOACIDURIA [None]
  - RESPIRATORY ACIDOSIS [None]
  - FANCONI SYNDROME [None]
  - INCREASED UPPER AIRWAY SECRETION [None]
